FAERS Safety Report 6979525-0 (Version None)
Quarter: 2010Q3

REPORT INFORMATION
  Report Type: 
  Country: None (occurrence: None)
  Receive Date: 20100910
  Receipt Date: 20100910
  Transmission Date: 20110219
  Serious: Yes (Hospitalization)
  Sender: FDA-Public Use
  Company Number: None

PATIENT
  Sex: Male
  Weight: 83.6 kg

DRUGS (23)
  1. ALIMTA [Suspect]
     Indication: NON-SMALL CELL LUNG CANCER
     Dosage: 500MG/M2 Q 21 DAYS 042
     Dates: start: 20100622, end: 20100803
  2. GEMZAR [Suspect]
     Indication: NON-SMALL CELL LUNG CANCER
     Dosage: 1250MG/M2 Q 21 DAYS  + DAY 8  042
     Dates: start: 20100622, end: 20100803
  3. MAGNESIUM OXIDE [Concomitant]
  4. POTASSIUM GLUCONATE TAB [Concomitant]
  5. ESTER C VITAMIN [Concomitant]
  6. DILTIAZEM [Concomitant]
  7. LASIX [Concomitant]
  8. FOSINOPRIL SODIUM [Concomitant]
  9. METOPROLOL TARTRATE [Concomitant]
  10. OMEPRAZOLE [Concomitant]
  11. ALPRAZOLAM [Concomitant]
  12. CENTRUM SILVER [Concomitant]
  13. ADVIL LIQUI-GELS [Concomitant]
  14. ASPIRIN [Concomitant]
  15. RED YEAST RICE EXTRACT [Concomitant]
  16. LOVAZA [Concomitant]
  17. GARLIC [Concomitant]
  18. VITAMIN D3 [Concomitant]
  19. GLUCOSAMINE-CHONDROITIN [Concomitant]
  20. FOLIC ACID [Concomitant]
  21. VITAMIN B-12 [Concomitant]
  22. ZOFRAN [Concomitant]
  23. DECADRON [Concomitant]

REACTIONS (8)
  - BACK PAIN [None]
  - BLOOD ALBUMIN DECREASED [None]
  - FATIGUE [None]
  - HAEMOGLOBIN DECREASED [None]
  - MUSCULAR WEAKNESS [None]
  - NAUSEA [None]
  - PLATELET COUNT DECREASED [None]
  - PYREXIA [None]
